FAERS Safety Report 4579470-4 (Version None)
Quarter: 2005Q1

REPORT INFORMATION
  Report Type: 
  Country: None (occurrence: None)
  Receive Date: 20050210
  Receipt Date: 20050210
  Transmission Date: 20050727
  Serious: Yes (Death)
  Sender: FDA-Public Use
  Company Number: None

PATIENT
  Sex: Female
  Weight: 48.6 kg

DRUGS (2)
  1. ALFA-2B INTERFEERON [Suspect]
     Dosage: 9.0 MU 3X/WEEK,SC,MON-WED-FRI
     Route: 058
     Dates: start: 20041201, end: 20050117
  2. RADIATION THERAPY [Concomitant]

REACTIONS (4)
  - ASTHENIA [None]
  - DEHYDRATION [None]
  - PULMONARY OEDEMA [None]
  - VENTRICULAR TACHYCARDIA [None]
